FAERS Safety Report 6555485-1 (Version None)
Quarter: 2010Q1

REPORT INFORMATION
  Report Type: 
  Country: None (occurrence: None)
  Receive Date: 20100128
  Receipt Date: 20100118
  Transmission Date: 20100710
  Serious: Yes (Hospitalization, Other)
  Sender: FDA-Public Use
  Company Number: AR-JNJFOC-20100107962

PATIENT
  Age: 65 Year
  Sex: Female

DRUGS (1)
  1. RISPERDAL [Suspect]
     Indication: AGITATION
     Route: 065

REACTIONS (2)
  - ELECTROCARDIOGRAM QT PROLONGED [None]
  - HOSPITALISATION [None]
